FAERS Safety Report 7052378-0 (Version None)
Quarter: 2010Q4

REPORT INFORMATION
  Report Type: 
  Country: None (occurrence: None)
  Receive Date: 20101014
  Receipt Date: 20100927
  Transmission Date: 20110411
  Serious: Yes (Other)
  Sender: FDA-Public Use
  Company Number: 2010P1001659

PATIENT
  Age: 79 Year
  Sex: Male
  Weight: 92.5338 kg

DRUGS (2)
  1. WARFARIN SODIUM [Suspect]
     Indication: MEDICATION ERROR
     Dosage: 6 MG;QD;PO
     Route: 048
     Dates: start: 20100922, end: 20100924
  2. MULTI-VITAMIN [Concomitant]

REACTIONS (6)
  - BLOOD TEST ABNORMAL [None]
  - DRUG DISPENSING ERROR [None]
  - EAR HAEMORRHAGE [None]
  - EPISTAXIS [None]
  - HAEMOPTYSIS [None]
  - INCORRECT DOSE ADMINISTERED [None]
